FAERS Safety Report 9464029 (Version 1)
Quarter: 2013Q3

REPORT INFORMATION
  Report Type: Spontaneous
  Country: FR (occurrence: FR)
  Receive Date: 20130819
  Receipt Date: 20130819
  Transmission Date: 20140515
  Serious: Yes (Hospitalization)
  Sender: FDA-Public Use
  Company Number: FR-MYLANLABS-2013S1017425

PATIENT
  Age: 75 Year
  Sex: Male

DRUGS (2)
  1. ACICLOVIR [Suspect]
     Indication: ENCEPHALITIS
     Route: 042
     Dates: start: 20130713, end: 20130715
  2. SIMVASTATIN [Concomitant]
     Indication: DYSLIPIDAEMIA

REACTIONS (1)
  - Renal tubular necrosis [Recovering/Resolving]
